FAERS Safety Report 7764742-2 (Version None)
Quarter: 2011Q3

REPORT INFORMATION
  Report Type: 
  Country: None (occurrence: None)
  Receive Date: 20110921
  Receipt Date: 20110921
  Transmission Date: 20111222
  Serious: Yes (Other)
  Sender: FDA-Public Use
  Company Number: None

PATIENT
  Age: 29 Year
  Sex: Female
  Weight: 56.699 kg

DRUGS (1)
  1. LUPRON DEPOT [Suspect]
     Indication: ENDOMETRIOSIS
     Dates: start: 20040601, end: 20040901

REACTIONS (5)
  - MIGRAINE [None]
  - MOOD ALTERED [None]
  - HOT FLUSH [None]
  - VULVOVAGINAL DRYNESS [None]
  - MENOPAUSE [None]
